FAERS Safety Report 7498881-0 (Version None)
Quarter: 2011Q2

REPORT INFORMATION
  Report Type: 
  Country: None (occurrence: None)
  Receive Date: 20110524
  Receipt Date: 20110428
  Transmission Date: 20111010
  Serious: Yes (Other)
  Sender: FDA-Public Use
  Company Number: US-BAYER-2011-001764

PATIENT
  Age: 31 Year
  Sex: Female
  Weight: 79.365 kg

DRUGS (3)
  1. ASCORBIC ACID [Concomitant]
  2. YASMIN [Suspect]
     Dosage: UNK
     Route: 048
     Dates: start: 20030601, end: 20080101
  3. CITALOPRAM HYDROBROMIDE [Concomitant]
     Indication: ANXIETY
     Dosage: UNK
     Dates: start: 20080101

REACTIONS (3)
  - CHOLECYSTECTOMY [None]
  - ABDOMINAL PAIN UPPER [None]
  - VOMITING [None]
